FAERS Safety Report 5482204-2 (Version None)
Quarter: 2007Q4

REPORT INFORMATION
  Report Type: 
  Country: None (occurrence: None)
  Receive Date: 20071011
  Receipt Date: 20071003
  Transmission Date: 20080405
  Serious: Yes (Hospitalization, Other)
  Sender: FDA-Public Use
  Company Number: HQWYE331614FEB05

PATIENT
  Sex: Female
  Weight: 62 kg

DRUGS (8)
  1. SIROLIMUS [Suspect]
     Indication: PROPHYLAXIS AGAINST TRANSPLANT REJECTION
     Dosage: UNSPECIFIED
     Route: 048
     Dates: start: 20040615, end: 20040816
  2. SIROLIMUS [Suspect]
     Route: 048
     Dates: start: 20040817, end: 20050215
  3. SIROLIMUS [Suspect]
     Route: 048
     Dates: start: 20050216, end: 20050217
  4. SIROLIMUS [Suspect]
     Route: 048
     Dates: start: 20050220, end: 20050303
  5. SIROLIMUS [Suspect]
     Route: 048
     Dates: start: 20050304, end: 20050307
  6. SIROLIMUS [Suspect]
     Route: 048
     Dates: start: 20050308
  7. AZATHIOPRINE [Concomitant]
     Dosage: 50 (UNSPECIFIED) DAILY
     Route: 065
     Dates: start: 19970521, end: 20050212
  8. AZATHIOPRINE [Concomitant]
     Dosage: 25 (UNSPECIFIED) DAILY
     Route: 065
     Dates: start: 20050213, end: 20050215

REACTIONS (17)
  - BRONCHIECTASIS [None]
  - BRONCHOSCOPY ABNORMAL [None]
  - COMPLICATIONS OF TRANSPLANTED LIVER [None]
  - COUGH [None]
  - DIARRHOEA [None]
  - EPISTAXIS [None]
  - ERYSIPELAS [None]
  - HAEMOPTYSIS [None]
  - HEPATIC STEATOSIS [None]
  - HYPERHIDROSIS [None]
  - IMMUNOSUPPRESSANT DRUG LEVEL INCREASED [None]
  - LABORATORY TEST INTERFERENCE [None]
  - PERIPHERAL VASCULAR DISORDER [None]
  - PYREXIA [None]
  - RALES [None]
  - VARICOSE VEIN [None]
  - VOMITING [None]
